FAERS Safety Report 10445208 (Version 1)
Quarter: 2014Q3

REPORT INFORMATION
  Report Type: Spontaneous
  Country: JP (occurrence: JP)
  Receive Date: 20140910
  Receipt Date: 20140910
  Transmission Date: 20150326
  Serious: Yes (Death, Hospitalization)
  Sender: FDA-Public Use
  Company Number: PHHY2014JP112228

PATIENT
  Age: 83 Year
  Sex: Female

DRUGS (9)
  1. ACYCLOVIR. [Concomitant]
     Active Substance: ACYCLOVIR
  2. ETHAMBUTOL [Suspect]
     Active Substance: ETHAMBUTOL HYDROCHLORIDE
     Dosage: 500 MG, PER DAY
  3. PREDNISOLONE. [Concomitant]
     Active Substance: PREDNISOLONE
     Indication: RHEUMATOID ARTHRITIS
     Dosage: 5 MG, PER DAY
  4. PREDNISOLONE. [Concomitant]
     Active Substance: PREDNISOLONE
     Dosage: 40 MG, PER DAY
  5. PREDNISOLONE. [Concomitant]
     Active Substance: PREDNISOLONE
     Dosage: 30 MG/DAY TO 5 MG, PER DAY
  6. MEROPENEM. [Concomitant]
     Active Substance: MEROPENEM
  7. PYRAZINAMIDE. [Suspect]
     Active Substance: PYRAZINAMIDE
     Dosage: 1200 MG, PER DAY
  8. ISONIAZID. [Suspect]
     Active Substance: ISONIAZID
     Dosage: 300 MG, PER DAY
  9. RIFAMPICIN [Suspect]
     Active Substance: RIFAMPIN
     Dosage: 450 MG, PER DAY

REACTIONS (5)
  - Cardiac failure [Fatal]
  - Pneumonia bacterial [Unknown]
  - Respiratory failure [Fatal]
  - Drug ineffective [Unknown]
  - Cryptococcosis [Unknown]
